FAERS Safety Report 5840168-3 (Version None)
Quarter: 2008Q3

REPORT INFORMATION
  Report Type: 
  Country: None (occurrence: None)
  Receive Date: 20080808
  Receipt Date: 20080808
  Transmission Date: 20090109
  Serious: Yes (Other)
  Sender: FDA-Public Use
  Company Number: None

PATIENT
  Age: 75 Year
  Sex: Female
  Weight: 48.5349 kg

DRUGS (1)
  1. TYLENOL (GELTAB) [Suspect]
     Indication: ARTHRITIS
     Dosage: 2 GELCAPS 4-6 HOURS 8 PR DAY
     Dates: start: 20080601

REACTIONS (4)
  - FEELING ABNORMAL [None]
  - HYPOAESTHESIA [None]
  - MEDICATION TAMPERING [None]
  - PHARMACEUTICAL PRODUCT COMPLAINT [None]
